FAERS Safety Report 4371405-2 (Version None)
Quarter: 2004Q2

REPORT INFORMATION
  Report Type: 
  Country: None (occurrence: None)
  Receive Date: 20040601
  Receipt Date: 20040217
  Transmission Date: 20050107
  Serious: No
  Sender: FDA-Public Use
  Company Number: 701658

PATIENT
  Age: 37 Year
  Sex: Female
  Weight: 54.4316 kg

DRUGS (2)
  1. AMEVIVE [Suspect]
     Indication: ALOPECIA UNIVERSALIS
     Dosage: 15 MG QW IM
     Route: 030
     Dates: start: 20040106
  2. TOPICAL STEROIDS [Concomitant]

REACTIONS (1)
  - LYMPHADENOPATHY [None]
